FAERS Safety Report 9574784 (Version 2)
Quarter: 2013Q4

REPORT INFORMATION
  Report Type: Spontaneous
  Country: US (occurrence: US)
  Receive Date: 20131001
  Receipt Date: 20131001
  Transmission Date: 20140711
  Serious: No
  Sender: FDA-Public Use
  Company Number: US-BANPHARM-20131286

PATIENT
  Sex: Male

DRUGS (1)
  1. LOPERAMIDE HCL CAPSULES, 2 MG [Suspect]
     Indication: DIARRHOEA
     Dosage: 1 DF,
     Route: 048
     Dates: start: 201303, end: 201303

REACTIONS (2)
  - Drug ineffective [Recovered/Resolved]
  - Therapeutic response unexpected with drug substitution [Unknown]
